FAERS Safety Report 9888099 (Version 1)
Quarter: 2014Q1

REPORT INFORMATION
  Report Type: Spontaneous
  Country: US (occurrence: US)
  Receive Date: 20140211
  Receipt Date: 20140211
  Transmission Date: 20141002
  Serious: Yes (Hospitalization)
  Sender: FDA-Public Use
  Company Number: US-GE HEALTHCARE MEDICAL DIAGNOSTICS-OMPQ-PR-1401S-0089

PATIENT
  Age: 65 Year
  Sex: Female
  Weight: 79.9 kg

DRUGS (3)
  1. OMNIPAQUE [Suspect]
     Indication: PRODUCT USED FOR UNKNOWN INDICATION
     Dosage: DOSE NOT REPORTED
     Route: 065
     Dates: start: 20130808, end: 20130808
  2. OMNIPAQUE [Suspect]
     Indication: DIAGNOSTIC PROCEDURE
  3. CENTRUM SILVER WOMEN^S 50+ [Suspect]
     Indication: VITAMIN SUPPLEMENTATION
     Route: 048
     Dates: end: 201308

REACTIONS (2)
  - Iodine allergy [Unknown]
  - Cyanosis [Unknown]
